FAERS Safety Report 18411009 (Version 1)
Quarter: 2020Q4

REPORT INFORMATION
  Report Type: Spontaneous
  Country: US (occurrence: US)
  Receive Date: 20201021
  Receipt Date: 20201021
  Transmission Date: 20210114
  Serious: No
  Sender: FDA-Public Use
  Company Number: US-SLATE RUN PHARMACEUTICALS-20US000300

PATIENT

DRUGS (1)
  1. DESVENLAFAXINE EXTENDED-RELEASE [Suspect]
     Active Substance: DESVENLAFAXINE SUCCINATE
     Indication: DEPRESSION
     Dosage: 200 MILLIGRAM, QD
     Route: 048
     Dates: start: 20200908, end: 20200911

REACTIONS (5)
  - Pruritus [Recovered/Resolved]
  - Dizziness [Recovered/Resolved]
  - Psychomotor hyperactivity [Recovered/Resolved]
  - Disturbance in attention [Recovered/Resolved]
  - Confusional state [Recovered/Resolved]

NARRATIVE: CASE EVENT DATE: 20200908
